FAERS Safety Report 12667848 (Version 1)
Quarter: 2016Q3

REPORT INFORMATION
  Report Type: Spontaneous
  Country: US (occurrence: US)
  Receive Date: 20160819
  Receipt Date: 20160819
  Transmission Date: 20161109
  Serious: No
  Sender: FDA-Public Use
  Company Number: US-WATSON-2016-11047

PATIENT
  Age: 6 Year
  Sex: Male

DRUGS (1)
  1. CLONIDINE. [Suspect]
     Active Substance: CLONIDINE
     Indication: PRODUCT USED FOR UNKNOWN INDICATION
     Dosage: 0.1 MG, DAILY
     Route: 062

REACTIONS (6)
  - Withdrawal syndrome [Unknown]
  - Somnolence [Recovering/Resolving]
  - Device defective [None]
  - Wrong technique in product usage process [Unknown]
  - Device issue [None]
  - Blood pressure abnormal [Recovering/Resolving]
